FAERS Safety Report 8817295 (Version 2)
Quarter: 2013Q1

REPORT INFORMATION
  Report Type: Spontaneous
  Country: JP (occurrence: JP)
  Receive Date: 20121004
  Receipt Date: 20130213
  Transmission Date: 20140127
  Serious: Yes (Death, Hospitalization)
  Sender: FDA-Public Use
  Company Number: JP-TEVA-333165USA

PATIENT
  Age: 70 Year
  Sex: Male
  Weight: 48.7 kg

DRUGS (11)
  1. TREANDA [Suspect]
     Indication: MANTLE CELL LYMPHOMA
     Route: 042
     Dates: start: 20110525, end: 20110526
  2. TREANDA [Suspect]
     Route: 042
     Dates: start: 20110615, end: 20110616
  3. TREANDA [Suspect]
     Route: 042
     Dates: start: 20110713, end: 20110714
  4. TREANDA [Suspect]
     Route: 042
     Dates: start: 20110831, end: 20110901
  5. TREANDA [Suspect]
     Route: 042
     Dates: start: 20110928, end: 20110929
  6. TREANDA [Suspect]
     Route: 042
     Dates: start: 20111117
  7. GRANISETRON HYDROCHLORIDE [Concomitant]
     Dates: start: 20110525, end: 20111118
  8. DEXAMETHASONE [Concomitant]
     Dosage: 12 MILLIGRAM DAILY;
     Dates: start: 20110525, end: 20111118
  9. BACTRIM [Concomitant]
     Indication: PNEUMOCYSTIS JIROVECII PNEUMONIA
  10. INSULIN LISPRO [Concomitant]
     Indication: DIABETES MELLITUS
     Dosage: 4U IN AM, 6U IN PM
  11. ACICLOVIR [Concomitant]
     Indication: HERPES VIRUS INFECTION

REACTIONS (7)
  - Respiratory failure [Fatal]
  - Pneumonia [Fatal]
  - Myelodysplastic syndrome [Not Recovered/Not Resolved]
  - Vomiting [Recovered/Resolved]
  - Anaemia [Recovered/Resolved]
  - Haematotoxicity [Unknown]
  - Adverse reaction [Unknown]
